FAERS Safety Report 10625813 (Version 7)
Quarter: 2015Q2

REPORT INFORMATION
  Report Type: Report from Study
  Country: BR (occurrence: BR)
  Receive Date: 20141204
  Receipt Date: 20150612
  Transmission Date: 20150821
  Serious: Yes (Other)
  Sender: FDA-Public Use
  Company Number: BR-SA-2014SA155878

PATIENT
  Age: 74 Year
  Sex: Female
  Weight: 64 kg

DRUGS (10)
  1. LANTUS [Suspect]
     Active Substance: INSULIN GLARGINE
     Indication: TYPE 2 DIABETES MELLITUS
     Route: 058
     Dates: start: 2012
  2. LANTUS [Suspect]
     Active Substance: INSULIN GLARGINE
     Indication: TYPE 2 DIABETES MELLITUS
     Route: 058
     Dates: start: 2010
  3. GABAPENTIN. [Concomitant]
     Active Substance: GABAPENTIN
     Indication: TYPE 2 DIABETES MELLITUS
     Route: 048
  4. OMEPRAZOLE. [Concomitant]
     Active Substance: OMEPRAZOLE
     Indication: PROPHYLAXIS
     Dosage: STRENGTH 40 MG
     Route: 048
     Dates: start: 2012
  5. PURAN [Concomitant]
     Active Substance: LEVOTHYROXINE SODIUM
     Indication: THYROID DISORDER
     Dosage: STRENGTH 25 MCG
     Route: 048
     Dates: start: 2012
  6. CLIKSTAR [Concomitant]
     Active Substance: CLIKSTAR
     Dates: start: 2012
  7. ARADOIS [Concomitant]
     Active Substance: LOSARTAN POTASSIUM
     Indication: CARDIAC DISORDER
     Dosage: STRENGTH 50 MG
     Route: 048
     Dates: start: 2011
  8. METFORMIN [Suspect]
     Active Substance: METFORMIN HYDROCHLORIDE
     Indication: TYPE 2 DIABETES MELLITUS
     Route: 048
  9. GALVUS [Concomitant]
     Active Substance: VILDAGLIPTIN
     Indication: TYPE 2 DIABETES MELLITUS
     Route: 048
     Dates: start: 2012
  10. ARADOIS [Concomitant]
     Active Substance: LOSARTAN POTASSIUM
     Indication: HYPERTENSION
     Dosage: STRENGTH 50 MG
     Route: 048
     Dates: start: 2011

REACTIONS (12)
  - Hypertension [Recovered/Resolved]
  - Retinal vein occlusion [Recovering/Resolving]
  - Visual impairment [Not Recovered/Not Resolved]
  - Visual impairment [Not Recovered/Not Resolved]
  - Visual acuity reduced [Unknown]
  - Lacrimation increased [Not Recovered/Not Resolved]
  - Superficial injury of eye [Not Recovered/Not Resolved]
  - Visual impairment [Recovered/Resolved]
  - Eye oedema [Recovering/Resolving]
  - Nausea [Recovered/Resolved]
  - Cataract [Recovered/Resolved]
  - Dry eye [Not Recovered/Not Resolved]

NARRATIVE: CASE EVENT DATE: 2011
